FAERS Safety Report 8299467-0 (Version None)
Quarter: 2012Q2

REPORT INFORMATION
  Report Type: 
  Country: None (occurrence: None)
  Receive Date: 20120411
  Receipt Date: 20120403
  Transmission Date: 20120825
  Serious: Yes (Other)
  Sender: FDA-Public Use
  Company Number: 2012PV000019

PATIENT
  Age: 49 Year
  Sex: Male

DRUGS (5)
  1. ACYCLOVIR [Concomitant]
  2. DEPOCYT [Suspect]
     Indication: ACUTE LYMPHOCYTIC LEUKAEMIA RECURRENT
     Dosage: 50 MG; INTH
     Route: 055
     Dates: start: 20111208, end: 20120220
  3. IMATINIB MESYLATE [Concomitant]
  4. FLUCONAZOLE [Concomitant]
  5. COTRIM [Concomitant]

REACTIONS (3)
  - HEADACHE [None]
  - DYSKINESIA [None]
  - NUCLEAR MAGNETIC RESONANCE IMAGING BRAIN ABNORMAL [None]
